FAERS Safety Report 10077339 (Version 2)
Quarter: 2014Q2

REPORT INFORMATION
  Report Type: Spontaneous
  Country: US (occurrence: US)
  Receive Date: 20140414
  Receipt Date: 20140414
  Transmission Date: 20141212
  Serious: No
  Sender: FDA-Public Use
  Company Number: US-BANPHARM-20131363

PATIENT
  Age: 69 Year
  Sex: Female
  Weight: 78.02 kg

DRUGS (6)
  1. ALEVE LIQUID GELS 220 MG [Suspect]
     Indication: ARTHRITIS
     Dosage: 1 DF,
     Route: 048
  2. VITAMIN D LIQUID GELS [Concomitant]
  3. HIGH BLOOD PRESSURE MEDICINE [Concomitant]
  4. FLUID PILL [Concomitant]
  5. CALCIUM PILL [Concomitant]
  6. THYROID MEDICATION [Concomitant]

REACTIONS (2)
  - Incorrect drug administration duration [Unknown]
  - Drug ineffective [Unknown]
